FAERS Safety Report 4439584-6 (Version None)
Quarter: 2004Q3

REPORT INFORMATION
  Report Type: 
  Country: None (occurrence: None)
  Receive Date: 20040830
  Receipt Date: 20040813
  Transmission Date: 20050211
  Serious: Yes (Other)
  Sender: FDA-Public Use
  Company Number: 2004-DE-04444DE

PATIENT
  Age: 55 Year
  Sex: Male

DRUGS (5)
  1. MICARDIS HCT [Suspect]
     Indication: CORONARY ARTERY DISEASE
     Dosage: 80 MG TELMISARTAN 12,5 MG HYDROCHLOROTHIAZID (SEE TEXT) PO
     Route: 048
     Dates: start: 20031209
  2. ASPIRIN [Concomitant]
  3. TENORMIN [Concomitant]
  4. SIMVASTATIN [Concomitant]
  5. DIURETIC [Concomitant]

REACTIONS (3)
  - ANGINA PECTORIS [None]
  - CORONARY ARTERY DISEASE [None]
  - DISEASE PROGRESSION [None]
